FAERS Safety Report 24183642 (Version 3)
Quarter: 2024Q3

REPORT INFORMATION
  Report Type: Spontaneous
  Country: US (occurrence: US)
  Receive Date: 20240807
  Receipt Date: 20240919
  Transmission Date: 20241016
  Serious: No
  Sender: PFIZER
  Company Number: US-PFIZER INC-202400226015

PATIENT
  Age: 11 Year
  Sex: Female

DRUGS (1)
  1. GENOTROPIN [Suspect]
     Active Substance: SOMATROPIN
     Indication: Hypopituitarism
     Dosage: 1.1 MG/DAY 7 DAYS/WEEK  (ALTERNATED BETWEEN 1.0 MG/DAY + 1.2 MG/DAY )
     Dates: start: 20231102

REACTIONS (4)
  - Device breakage [Unknown]
  - Device delivery system issue [Unknown]
  - Drug dose omission by device [Unknown]
  - Device use error [Unknown]
